FAERS Safety Report 25283340 (Version 1)
Quarter: 2025Q2

REPORT INFORMATION
  Report Type: Spontaneous
  Country: RS (occurrence: RS)
  Receive Date: 20250508
  Receipt Date: 20250508
  Transmission Date: 20250717
  Serious: Yes (Other)
  Sender: PFIZER
  Company Number: RS-PFIZER INC-PV202500053885

PATIENT
  Age: 74 Year
  Sex: Male

DRUGS (1)
  1. LORLATINIB [Suspect]
     Active Substance: LORLATINIB
     Indication: Non-small cell lung cancer
     Dates: start: 202409, end: 202412

REACTIONS (4)
  - Pericardial effusion [Unknown]
  - Non-small cell lung cancer [Unknown]
  - Malignant neoplasm progression [Unknown]
  - Ascites [Unknown]

NARRATIVE: CASE EVENT DATE: 20241101
